FAERS Safety Report 16322927 (Version 5)
Quarter: 2019Q3

REPORT INFORMATION
  Report Type: Report from Study
  Country: US (occurrence: US)
  Receive Date: 20190516
  Receipt Date: 20190917
  Transmission Date: 20191004
  Serious: Yes (Death, Other)
  Sender: FDA-Public Use
  Company Number: PHEH2019US020615

PATIENT
  Age: 80 Year
  Sex: Female
  Weight: 77 kg

DRUGS (2)
  1. ENTRESTO [Suspect]
     Active Substance: SACUBITRIL\VALSARTAN
     Indication: CARDIAC FAILURE CONGESTIVE
     Dosage: 0.5 DF, BID
     Route: 048
     Dates: start: 20190508, end: 20190510
  2. ENTRESTO [Suspect]
     Active Substance: SACUBITRIL\VALSARTAN
     Indication: CARDIAC FAILURE

REACTIONS (8)
  - Cardiac failure congestive [Fatal]
  - Congestive cardiomyopathy [Fatal]
  - Asthenia [Unknown]
  - Blood pressure decreased [Unknown]
  - Cardiac failure [Unknown]
  - Feeling abnormal [Unknown]
  - Wrong technique in product usage process [Unknown]
  - Depressed level of consciousness [Unknown]

NARRATIVE: CASE EVENT DATE: 20190510
